FAERS Safety Report 13177120 (Version 1)
Quarter: 2017Q1

REPORT INFORMATION
  Report Type: Report from Study
  Country: US (occurrence: US)
  Receive Date: 20170201
  Receipt Date: 20170201
  Transmission Date: 20170428
  Serious: No
  Sender: FDA-Public Use
  Company Number: US-EXELIXIS-CABO-16007136

PATIENT
  Age: 66 Year
  Sex: Female
  Weight: 59.77 kg

DRUGS (9)
  1. HYDROCODONE BITARTRATE W/PARACETAMOL [Concomitant]
     Active Substance: ACETAMINOPHEN\HYDROCODONE BITARTRATE
  2. CYCLOBENZAPRINE [Concomitant]
     Active Substance: CYCLOBENZAPRINE
  3. SYNTHROID [Concomitant]
     Active Substance: LEVOTHYROXINE SODIUM
  4. ZOCOR [Concomitant]
     Active Substance: SIMVASTATIN
  5. CELEXA [Concomitant]
     Active Substance: CITALOPRAM HYDROBROMIDE
  6. COMPAZINE [Concomitant]
     Active Substance: PROCHLORPERAZINE MALEATE
  7. CABOMETYX [Suspect]
     Active Substance: CABOZANTINIB S-MALATE
     Indication: RENAL CANCER
     Dosage: 60 MG, QD
     Route: 048
     Dates: start: 20160818, end: 20160901
  8. TIZANIDINE. [Concomitant]
     Active Substance: TIZANIDINE
  9. MIRALAX [Concomitant]
     Active Substance: POLYETHYLENE GLYCOL 3350

REACTIONS (4)
  - Fatigue [Unknown]
  - Vertebral lesion [Unknown]
  - Skin mass [Unknown]
  - Vomiting [Unknown]

NARRATIVE: CASE EVENT DATE: 201609
